FAERS Safety Report 6984061-1 (Version None)
Quarter: 2010Q3

REPORT INFORMATION
  Report Type: 
  Country: None (occurrence: None)
  Receive Date: 20100915
  Receipt Date: 20090512
  Transmission Date: 20110219
  Serious: No
  Sender: FDA-Public Use
  Company Number: US-WYE-H09317709

PATIENT
  Sex: Female
  Weight: 102.15 kg

DRUGS (3)
  1. PRISTIQ [Suspect]
     Indication: DEPRESSION
     Route: 048
     Dates: start: 20090123
  2. KLONOPIN [Concomitant]
  3. WELLBUTRIN [Concomitant]

REACTIONS (2)
  - VAGINAL HAEMORRHAGE [None]
  - VITAMIN B12 DEFICIENCY [None]
